FAERS Safety Report 6110747-7 (Version None)
Quarter: 2009Q1

REPORT INFORMATION
  Report Type: 
  Country: None (occurrence: None)
  Receive Date: 20090309
  Receipt Date: 20090225
  Transmission Date: 20090719
  Serious: Yes (Death)
  Sender: FDA-Public Use
  Company Number: OSCN-PR-0902S-0111

PATIENT
  Sex: Male

DRUGS (2)
  1. OMNISCAN [Suspect]
     Indication: DRUG USE FOR UNKNOWN INDICATION
     Dosage: SINGLE DOSE
     Dates: start: 20070110, end: 20070110
  2. OMNISCAN [Suspect]
     Indication: DRUG USE FOR UNKNOWN INDICATION
     Dosage: SINGLE DOSE
     Dates: start: 20070613, end: 20070613

REACTIONS (1)
  - NEPHROGENIC SYSTEMIC FIBROSIS [None]
